FAERS Safety Report 6124814-5 (Version None)
Quarter: 2009Q1

REPORT INFORMATION
  Report Type: 
  Country: None (occurrence: None)
  Receive Date: 20090319
  Receipt Date: 20090311
  Transmission Date: 20090719
  Serious: Yes (Other)
  Sender: FDA-Public Use
  Company Number: PHHY2009DE09183

PATIENT

DRUGS (3)
  1. CARBAMAZEPINE [Suspect]
     Indication: EPILEPSY
     Dosage: 800 MG, UNK
  2. QUETIAPINE FUMARATE [Interacting]
     Indication: ABNORMAL BEHAVIOUR
     Dosage: 700 MG UNK
  3. QUETIAPINE FUMARATE [Interacting]
     Indication: ALCOHOL INDUCED PERSISTING DEMENTIA

REACTIONS (3)
  - ABNORMAL BEHAVIOUR [None]
  - DRUG INTERACTION [None]
  - DRUG LEVEL DECREASED [None]
